FAERS Safety Report 20737290 (Version 2)
Quarter: 2023Q2

REPORT INFORMATION
  Report Type: Spontaneous
  Country: AU (occurrence: None)
  Receive Date: 20220421
  Receipt Date: 20230530
  Transmission Date: 20230722
  Serious: Yes (Hospitalization)
  Sender: FDA-Public Use
  Company Number: 2022A155485

PATIENT
  Age: 89 Year
  Sex: Male

DRUGS (18)
  1. OMEPRAZOLE [Suspect]
     Active Substance: OMEPRAZOLE
     Indication: Gastrooesophageal reflux disease
     Route: 048
     Dates: start: 2013, end: 20220210
  2. RAMIPRIL [Suspect]
     Active Substance: RAMIPRIL
     Route: 048
  3. SULFAMETHOXAZOLE\TRIMETHOPRIM [Suspect]
     Active Substance: SULFAMETHOXAZOLE\TRIMETHOPRIM
     Route: 065
  4. FUROSEMIDE [Suspect]
     Active Substance: FUROSEMIDE
     Dosage: 80 MG IV AS PER MEDICAL RECORDS
     Route: 042
  5. EPLERENONE [Suspect]
     Active Substance: EPLERENONE
     Route: 065
  6. ASTRAZENECA COVID-19 VACCINE [Suspect]
     Active Substance: AZD-1222
     Indication: COVID-19
     Route: 030
  7. BISOPROLOL [Concomitant]
     Active Substance: BISOPROLOL
     Indication: Hypertension
     Route: 048
     Dates: start: 1995
  8. EPLERENONE [Concomitant]
     Active Substance: EPLERENONE
     Indication: Cardiac failure
     Route: 048
     Dates: start: 2018, end: 20220210
  9. FUROSEMIDE [Concomitant]
     Active Substance: FUROSEMIDE
     Indication: Cardiac failure
     Route: 048
     Dates: start: 2017, end: 20220210
  10. SPAN K [Concomitant]
     Indication: Supplementation therapy
     Route: 048
     Dates: start: 2018, end: 20220210
  11. OMEPRAZOLE [Concomitant]
     Active Substance: OMEPRAZOLE
     Indication: Gastrooesophageal reflux disease
     Route: 048
     Dates: start: 2013, end: 20220210
  12. ATORVASTATIN [Concomitant]
     Active Substance: ATORVASTATIN
     Indication: Coronary artery disease
     Route: 048
     Dates: start: 201509
  13. RAMIPRIL [Concomitant]
     Active Substance: RAMIPRIL
     Indication: Cardiac failure
     Route: 048
     Dates: start: 20200619, end: 20220210
  14. RIVAROXABAN [Concomitant]
     Active Substance: RIVAROXABAN
     Indication: Atrial fibrillation
     Route: 048
     Dates: start: 20210922, end: 20220210
  15. SULFAMETHOXAZOLE\TRIMETHOPRIM [Concomitant]
     Active Substance: SULFAMETHOXAZOLE\TRIMETHOPRIM
     Indication: Wound infection
     Dosage: 160/80 MG
     Route: 048
     Dates: start: 20220118, end: 20220210
  16. POTASSIUM CHLORIDE [Concomitant]
     Active Substance: POTASSIUM CHLORIDE
     Route: 048
  17. COLCHICINE [Concomitant]
     Active Substance: COLCHICINE
  18. COVID-19 PFIZER BOOSTER [Concomitant]
     Route: 030
     Dates: start: 20211216

REACTIONS (11)
  - Acute kidney injury [Recovered/Resolved with Sequelae]
  - Fall [Recovered/Resolved with Sequelae]
  - Tissue injury [Unknown]
  - Infection [Unknown]
  - Ischaemic cardiomyopathy [Unknown]
  - Cardiac failure [Unknown]
  - Hypervolaemia [Unknown]
  - Skin laceration [Unknown]
  - Skin abrasion [Unknown]
  - Swelling [Unknown]
  - Oedema [Unknown]

NARRATIVE: CASE EVENT DATE: 20220209
